FAERS Safety Report 23315092 (Version 2)
Quarter: 2024Q1

REPORT INFORMATION
  Report Type: Spontaneous
  Country: SE (occurrence: SE)
  Receive Date: 20231219
  Receipt Date: 20240302
  Transmission Date: 20240410
  Serious: Yes (Life-Threatening, Hospitalization)
  Sender: FDA-Public Use
  Company Number: SE-SANDOZ-SDZ2023SE067734

PATIENT
  Age: 32 Year
  Sex: Female
  Weight: 85 kg

DRUGS (35)
  1. LAMOTRIGINE [Suspect]
     Active Substance: LAMOTRIGINE
     Indication: Product used for unknown indication
     Dosage: 150 MG, QD
     Route: 065
  2. LAMOTRIGINE [Suspect]
     Active Substance: LAMOTRIGINE
     Dosage: 25 MG
     Route: 065
  3. LABETALOL [Suspect]
     Active Substance: LABETALOL\LABETALOL HYDROCHLORIDE
     Indication: Hypertension
     Dosage: 600MG
     Route: 065
  4. LABETALOL [Suspect]
     Active Substance: LABETALOL\LABETALOL HYDROCHLORIDE
     Indication: Oedema
  5. OLANZAPINE [Suspect]
     Active Substance: OLANZAPINE
     Dosage: 10 MG, QD
     Route: 065
  6. OLANZAPINE [Suspect]
     Active Substance: OLANZAPINE
     Indication: Anxiety
     Dosage: 2.5 MG, BID
     Route: 065
  7. OLANZAPINE [Suspect]
     Active Substance: OLANZAPINE
     Dosage: 5 MG, BID
     Route: 065
  8. OLANZAPINE [Suspect]
     Active Substance: OLANZAPINE
     Indication: Suicidal ideation
     Dosage: 7.5 MG, QD
     Route: 065
  9. QUETIAPINE [Suspect]
     Active Substance: QUETIAPINE
     Indication: Sleep disorder
     Dosage: 25 MG
     Route: 065
  10. CLONIDINE [Concomitant]
     Active Substance: CLONIDINE
     Indication: Hypertension
     Route: 065
  11. CLONIDINE [Concomitant]
     Active Substance: CLONIDINE
     Indication: Oedema
  12. ENALAPRIL [Concomitant]
     Active Substance: ENALAPRIL
     Indication: Hypertension
     Dosage: 5 MG
     Route: 065
  13. FUROSEMIDE [Concomitant]
     Active Substance: FUROSEMIDE
     Indication: Hypertension
     Dosage: 40 MG
     Route: 065
  14. FUROSEMIDE [Concomitant]
     Active Substance: FUROSEMIDE
     Indication: Oedema
  15. MAGNESIUM SULFATE [Concomitant]
     Active Substance: MAGNESIUM SULFATE\MAGNESIUM SULFATE HEPTAHYDRATE
     Indication: Seizure prophylaxis
     Route: 065
  16. NIFEDIPINE [Concomitant]
     Active Substance: NIFEDIPINE
     Indication: Hypertension
     Route: 065
  17. NIFEDIPINE [Concomitant]
     Active Substance: NIFEDIPINE
     Indication: Oedema
  18. OLANZAPINE [Concomitant]
     Active Substance: OLANZAPINE
     Indication: Anxiety
     Route: 065
  19. OLANZAPINE [Concomitant]
     Active Substance: OLANZAPINE
     Indication: Anxiety
     Route: 065
  20. OLANZAPINE [Concomitant]
     Active Substance: OLANZAPINE
     Indication: Anxiety
     Route: 065
  21. OLANZAPINE [Concomitant]
     Active Substance: OLANZAPINE
     Indication: Anxiety
     Route: 065
  22. OLANZAPINE [Concomitant]
     Active Substance: OLANZAPINE
     Indication: Anxiety
     Route: 065
  23. OLANZAPINE [Concomitant]
     Active Substance: OLANZAPINE
     Indication: Anxiety
     Route: 065
  24. OLANZAPINE [Concomitant]
     Active Substance: OLANZAPINE
     Indication: Suicidal ideation
  25. OLANZAPINE [Concomitant]
     Active Substance: OLANZAPINE
     Indication: Suicidal ideation
  26. OLANZAPINE [Concomitant]
     Active Substance: OLANZAPINE
     Indication: Suicidal ideation
  27. ONDANSETRON [Concomitant]
     Active Substance: ONDANSETRON
     Indication: Nausea
     Dosage: 4 MG, PRN
     Route: 065
  28. OXAZEPAM [Concomitant]
     Active Substance: OXAZEPAM
     Indication: Anxiety
     Dosage: 10 MG
     Route: 065
  29. PROMETHAZINE [Concomitant]
     Active Substance: PROMETHAZINE HYDROCHLORIDE
     Indication: Anxiety
     Dosage: 25 MG
     Route: 065
  30. VENLAFAXINE [Concomitant]
     Active Substance: VENLAFAXINE HYDROCHLORIDE
     Dosage: 187.5 MG, QD
     Route: 065
  31. VENLAFAXINE [Concomitant]
     Active Substance: VENLAFAXINE HYDROCHLORIDE
     Indication: Product used for unknown indication
     Dosage: 225 MG, QD
     Route: 065
  32. VENLAFAXINE [Concomitant]
     Active Substance: VENLAFAXINE HYDROCHLORIDE
     Dosage: 225MG/DAY
     Route: 065
  33. VENLAFAXINE [Concomitant]
     Active Substance: VENLAFAXINE HYDROCHLORIDE
     Indication: Product used for unknown indication
     Route: 065
  34. VENLAFAXINE [Concomitant]
     Active Substance: VENLAFAXINE HYDROCHLORIDE
     Indication: Product used for unknown indication
     Route: 065
  35. ZOLPIDEM [Concomitant]
     Active Substance: ZOLPIDEM TARTRATE
     Indication: Sleep disorder
     Dosage: 10 MG, QD
     Route: 065

REACTIONS (14)
  - Pre-eclampsia [Recovering/Resolving]
  - Oedema peripheral [Recovering/Resolving]
  - Weight increased [Recovering/Resolving]
  - Maternal exposure during pregnancy [Unknown]
  - Premature baby [Unknown]
  - Generalised anxiety disorder [Unknown]
  - Off label use [Unknown]
  - Hypoalbuminaemia [Recovering/Resolving]
  - Obsessive-compulsive disorder [Unknown]
  - Rebound effect [Unknown]
  - Borderline personality disorder [Unknown]
  - Post-traumatic stress disorder [Unknown]
  - Drug ineffective [Unknown]
  - Proteinuria [Recovering/Resolving]
